FAERS Safety Report 25908689 (Version 2)
Quarter: 2025Q4

REPORT INFORMATION
  Report Type: Report from Study
  Country: CA (occurrence: CA)
  Receive Date: 20251010
  Receipt Date: 20251107
  Transmission Date: 20260118
  Serious: Yes (Hospitalization, Other)
  Sender: ABBVIE
  Company Number: CA-ABBVIE-6484151

PATIENT
  Age: 23 Year
  Sex: Male

DRUGS (3)
  1. SKYRIZI [Suspect]
     Active Substance: RISANKIZUMAB-RZAA
     Indication: Crohn^s disease
     Route: 058
  2. SKYRIZI [Suspect]
     Active Substance: RISANKIZUMAB-RZAA
     Route: 058
  3. SKYRIZI [Suspect]
     Active Substance: RISANKIZUMAB-RZAA
     Indication: Crohn^s disease
     Route: 042

REACTIONS (6)
  - Colectomy [Unknown]
  - Pain [Unknown]
  - Crohn^s disease [Unknown]
  - Abscess drainage [Unknown]
  - Jejunectomy [Unknown]
  - Small intestinal anastomosis [Unknown]

NARRATIVE: CASE EVENT DATE: 20250929
